FAERS Safety Report 22520349 (Version 1)
Quarter: 2023Q2

REPORT INFORMATION
  Report Type: Spontaneous
  Country: DK (occurrence: DK)
  Receive Date: 20230605
  Receipt Date: 20230605
  Transmission Date: 20230722
  Serious: Yes (Hospitalization)
  Sender: FDA-Public Use
  Company Number: None

PATIENT
  Age: 33 Year
  Sex: Female

DRUGS (2)
  1. PROHANCE [Suspect]
     Active Substance: GADOTERIDOL
     Indication: Magnetic resonance imaging
     Dosage: STRENGTH: 279.3 MG/ML
     Route: 065
     Dates: start: 20230303, end: 20230303
  2. BUTYLSCOPOLAMINE BROMIDE [Suspect]
     Active Substance: BUTYLSCOPOLAMINE BROMIDE
     Indication: Magnetic resonance imaging
     Dosage: STRENGTH: 20 MG/ML
     Route: 065
     Dates: start: 20230303, end: 20230303

REACTIONS (16)
  - Cold sweat [Not Recovered/Not Resolved]
  - Dysgeusia [Recovered/Resolved]
  - Back pain [Not Recovered/Not Resolved]
  - Arthralgia [Not Recovered/Not Resolved]
  - Paraesthesia [Recovering/Resolving]
  - Dyspnoea [Not Recovered/Not Resolved]
  - Neuralgia [Recovering/Resolving]
  - Myalgia [Not Recovered/Not Resolved]
  - Oedema [Recovering/Resolving]
  - Bone pain [Not Recovered/Not Resolved]
  - Chest pain [Not Recovered/Not Resolved]
  - Heart rate irregular [Not Recovered/Not Resolved]
  - Heart rate increased [Not Recovered/Not Resolved]
  - Night sweats [Not Recovered/Not Resolved]
  - Limb discomfort [Not Recovered/Not Resolved]
  - Taste disorder [Recovering/Resolving]

NARRATIVE: CASE EVENT DATE: 20230101
